FAERS Safety Report 11214482 (Version 1)
Quarter: 2015Q2

REPORT INFORMATION
  Report Type: Spontaneous
  Country: US (occurrence: None)
  Receive Date: 20150622
  Receipt Date: 20150622
  Transmission Date: 20150821
  Serious: Yes (Other)
  Sender: FDA-Public Use
  Company Number: None

PATIENT
  Age: 70 Year
  Sex: Female

DRUGS (2)
  1. AFINITOR [Suspect]
     Active Substance: EVEROLIMUS
     Indication: BREAST CANCER
     Route: 048
     Dates: start: 20150421
  2. EXEMESTANE. [Concomitant]
     Active Substance: EXEMESTANE

REACTIONS (2)
  - Night sweats [None]
  - Sinusitis [None]

NARRATIVE: CASE EVENT DATE: 20150619
